FAERS Safety Report 6240844-7 (Version None)
Quarter: 2009Q2

REPORT INFORMATION
  Report Type: 
  Country: None (occurrence: None)
  Receive Date: 20090623
  Receipt Date: 20090615
  Transmission Date: 20091009
  Serious: Yes (Hospitalization)
  Sender: FDA-Public Use
  Company Number: IT-PFIZER INC-2009226912

PATIENT
  Age: 65 Year

DRUGS (5)
  1. SUTENT [Suspect]
     Indication: RENAL NEOPLASM
     Dosage: 50 MG, 1X/DAY
     Route: 048
     Dates: start: 20090418, end: 20090501
  2. TICLOPIDINE HYDROCHLORIDE [Concomitant]
  3. NEBILOX [Concomitant]
  4. NORVASC [Concomitant]
  5. KARVEA [Concomitant]

REACTIONS (6)
  - ANAEMIA [None]
  - DIARRHOEA [None]
  - LEUKOPENIA [None]
  - ORAL HERPES [None]
  - STOMATITIS [None]
  - THROMBOCYTOPENIA [None]
